FAERS Safety Report 9108429 (Version 1)
Quarter: 2013Q1

REPORT INFORMATION
  Report Type: Spontaneous
  Country: VE (occurrence: VE)
  Receive Date: 20130222
  Receipt Date: 20130222
  Transmission Date: 20140127
  Serious: Yes (Other)
  Sender: FDA-Public Use
  Company Number: PHHY2011VE79449

PATIENT
  Age: 77 None
  Sex: Female

DRUGS (7)
  1. ACLASTA [Suspect]
     Indication: OSTEOPOROSIS
     Dosage: 5 MG, UNK
     Route: 042
     Dates: start: 20110601
  2. THYRAX [Concomitant]
     Dosage: 0.1 MG, QD
  3. GLUCOSAMINE [Concomitant]
     Indication: ARTHRALGIA
     Dosage: UNK UKN, DAILY
  4. EUTHYROX [Concomitant]
     Indication: HYPOTHYROIDISM
     Dosage: 100 UG, DAILY
  5. NEURONTIN [Concomitant]
     Indication: BACK PAIN
     Dosage: 600 MG, DAILY
     Dates: start: 2010
  6. CORASPIRINA [Concomitant]
     Dosage: 81 MG, DAILY
  7. OMEGA 3 [Concomitant]
     Dosage: UNK MG, DAILY

REACTIONS (5)
  - Erysipelas [Recovered/Resolved]
  - Facial pain [Recovered/Resolved]
  - Pyrexia [Recovered/Resolved]
  - Tremor [Recovered/Resolved]
  - Pain in jaw [Recovered/Resolved]
